FAERS Safety Report 12706344 (Version 1)
Quarter: 2016Q3

REPORT INFORMATION
  Report Type: Spontaneous
  Country: US (occurrence: None)
  Receive Date: 20160831
  Receipt Date: 20160831
  Transmission Date: 20161109
  Serious: Yes (Hospitalization)
  Sender: FDA-Public Use
  Company Number: None

PATIENT
  Age: 57 Year
  Sex: Female

DRUGS (1)
  1. CIMZIA [Suspect]
     Active Substance: CERTOLIZUMAB PEGOL
     Dosage: Q21DAYS
     Route: 058
     Dates: start: 20131004

REACTIONS (2)
  - Therapy cessation [None]
  - Antibiotic therapy [None]

NARRATIVE: CASE EVENT DATE: 201608
